FAERS Safety Report 23494631 (Version 6)
Quarter: 2024Q3

REPORT INFORMATION
  Report Type: Report from Study
  Country: US (occurrence: US)
  Receive Date: 20240207
  Receipt Date: 20240722
  Transmission Date: 20241017
  Serious: No
  Sender: BIOVITRUM
  Company Number: US-BIOVITRUM-2023-US-019719

PATIENT
  Age: 78 Year
  Sex: Female

DRUGS (4)
  1. DOPTELET [Suspect]
     Active Substance: AVATROMBOPAG MALEATE
     Indication: Immune thrombocytopenia
     Dosage: DAILY?EVERY 48 HOURS
     Route: 048
     Dates: start: 20231118
  2. DOPTELET [Suspect]
     Active Substance: AVATROMBOPAG MALEATE
     Dosage: 7 DAYS A WEEK
     Route: 048
  3. DOPTELET [Suspect]
     Active Substance: AVATROMBOPAG MALEATE
     Dosage: ONCE EVERY 48 HOURS- ONLY TAKING M-W- F
     Route: 048
     Dates: start: 20231118
  4. DOPTELET [Suspect]
     Active Substance: AVATROMBOPAG MALEATE
     Dosage: BID
     Route: 048
     Dates: start: 20231118

REACTIONS (27)
  - Liver disorder [Unknown]
  - Adverse drug reaction [Unknown]
  - Oliguria [Unknown]
  - Intentional product misuse [Unknown]
  - Brain fog [Unknown]
  - Memory impairment [Unknown]
  - Fatigue [Unknown]
  - Constipation [Unknown]
  - Diarrhoea [Unknown]
  - Faeces hard [Unknown]
  - Faeces soft [Unknown]
  - Abnormal faeces [Unknown]
  - Functional gastrointestinal disorder [Unknown]
  - Sleep disorder [Unknown]
  - Condition aggravated [Unknown]
  - Nausea [Unknown]
  - Feeling abnormal [Unknown]
  - Tremor [Unknown]
  - Malaise [Unknown]
  - Aggression [Unknown]
  - Blood sodium decreased [Unknown]
  - Dyspepsia [Unknown]
  - Gastrointestinal disorder [Unknown]
  - Drug intolerance [Unknown]
  - Platelet count increased [Unknown]
  - Hypertension [Unknown]
  - Urine output decreased [Unknown]
